FAERS Safety Report 5828641-5 (Version None)
Quarter: 2008Q3

REPORT INFORMATION
  Report Type: 
  Country: None (occurrence: None)
  Receive Date: 20080731
  Receipt Date: 20080725
  Transmission Date: 20090109
  Serious: Yes (Other)
  Sender: FDA-Public Use
  Company Number: B0527809A

PATIENT
  Age: 59 Year
  Sex: Male

DRUGS (7)
  1. VALTREX [Suspect]
     Indication: HERPES ZOSTER
     Dosage: 1000MG THREE TIMES PER DAY
     Route: 048
     Dates: start: 20080624, end: 20080626
  2. LOXONIN [Suspect]
     Indication: LYMPHADENITIS
     Route: 065
     Dates: start: 20080624, end: 20080626
  3. CYANOCOBALAMIN [Concomitant]
     Indication: NERVOUS SYSTEM DISORDER
     Dosage: 1.5MG PER DAY
     Route: 048
     Dates: start: 20080624, end: 20080626
  4. MUCOSTA [Concomitant]
     Indication: STOMACH DISCOMFORT
     Route: 048
     Dates: start: 20080624, end: 20080626
  5. SIOSNAL [Concomitant]
     Indication: RASH
     Dosage: 2G PER DAY
     Route: 061
     Dates: start: 20080624, end: 20080627
  6. UNKNOWN DRUG [Concomitant]
     Indication: RASH
     Dosage: 2G PER DAY
     Route: 061
     Dates: start: 20080624, end: 20080627
  7. UNKNOWN DRUG [Concomitant]
     Dosage: 2G PER DAY
     Route: 061
     Dates: start: 20080624, end: 20080627

REACTIONS (5)
  - HAEMATURIA [None]
  - NAUSEA [None]
  - PROTEINURIA [None]
  - PYREXIA [None]
  - RENAL DISORDER [None]
